FAERS Safety Report 8152234-0 (Version None)
Quarter: 2012Q1

REPORT INFORMATION
  Report Type: 
  Country: None (occurrence: None)
  Receive Date: 20120103
  Receipt Date: 20111113
  Transmission Date: 20120608
  Serious: No
  Sender: FDA-Public Use
  Company Number: AE-2011-003418

PATIENT
  Age: 49 Year
  Sex: Female
  Weight: 104.3273 kg

DRUGS (6)
  1. INCIVEK [Suspect]
     Dosage: 6 DOSAGE FORMS (2 DOSAGE FORMS,3 IN 1 D), ORAL
     Route: 048
     Dates: start: 20111111
  2. PEGASYS [Concomitant]
  3. ABILIFY [Concomitant]
  4. RIBAVIRIN [Concomitant]
  5. CELEXA (CIATLOPRAM HYDROBROMIDE) [Concomitant]
  6. LEVOTHYROXINE SODIUM [Concomitant]

REACTIONS (3)
  - ANORECTAL DISCOMFORT [None]
  - HAEMATOCHEZIA [None]
  - HAEMORRHOIDS [None]
